FAERS Safety Report 4716411-0 (Version None)
Quarter: 2005Q3

REPORT INFORMATION
  Report Type: 
  Country: None (occurrence: None)
  Receive Date: 20050719
  Receipt Date: 20050711
  Transmission Date: 20060218
  Serious: Yes (Other)
  Sender: FDA-Public Use
  Company Number: GB-BOEHRINGER INGELHEIM PHARMACEUTICALS, INC.-2005-UK-01249UK

PATIENT
  Age: 89 Year
  Sex: Male
  Weight: 74 kg

DRUGS (6)
  1. SPIRIVA [Suspect]
     Dosage: 18 MCG DAILY
     Route: 055
     Dates: start: 20040709, end: 20050629
  2. PERINDOPRIL [Concomitant]
     Route: 065
     Dates: start: 20000101
  3. BENDROFLUMETHIAZIDE [Concomitant]
     Indication: HYPERTENSION
     Dosage: 2.5 MG DAILY
     Route: 065
     Dates: start: 19990101
  4. SYMBICORT [Concomitant]
     Indication: CHRONIC OBSTRUCTIVE PULMONARY DISEASE
     Dosage: 200/6
     Route: 065
     Dates: start: 20050310
  5. SALBUTAMOL [Concomitant]
     Indication: CHRONIC OBSTRUCTIVE PULMONARY DISEASE
     Route: 065
     Dates: start: 20040709
  6. TEMAZEPAM [Concomitant]
     Dosage: 10 MG AT NIGHT
     Route: 065
     Dates: start: 19991101

REACTIONS (1)
  - ARTHRALGIA [None]
